FAERS Safety Report 24413522 (Version 2)
Quarter: 2024Q4

REPORT INFORMATION
  Report Type: Report from Study
  Country: CO (occurrence: CO)
  Receive Date: 20241008
  Receipt Date: 20241212
  Transmission Date: 20250114
  Serious: Yes (Hospitalization)
  Sender: ASTELLAS
  Company Number: CO-ASTELLAS-2024US015239

PATIENT
  Age: 75 Year
  Sex: Male
  Weight: 68 kg

DRUGS (2)
  1. TACROLIMUS [Suspect]
     Active Substance: TACROLIMUS
     Indication: Renal transplant
     Dosage: 1 MG (1 CAPSULE) AND 3 MG (1 CAPSULE); DAILY DOSE OF 4 MG EVERY 24 HOURS
     Route: 048
     Dates: start: 20161208
  2. TACROLIMUS [Suspect]
     Active Substance: TACROLIMUS
     Dosage: 1 MG (1 CAPSULE) AND 3 MG (1 CAPSULE); DAILY DOSE OF 4 MG EVERY 24 HOURS
     Route: 048
     Dates: start: 20171207

REACTIONS (2)
  - Prostatitis [Unknown]
  - Urinary tract infection [Recovering/Resolving]

NARRATIVE: CASE EVENT DATE: 20240601
